FAERS Safety Report 6942607-3 (Version None)
Quarter: 2010Q3

REPORT INFORMATION
  Report Type: 
  Country: None (occurrence: None)
  Receive Date: 20100819
  Receipt Date: 20100804
  Transmission Date: 20110219
  Serious: Yes (Other)
  Sender: FDA-Public Use
  Company Number: FKO201000311

PATIENT
  Age: 4 Month
  Sex: Male

DRUGS (5)
  1. CYTARABINE (MANUFACTURER UNKNOWN) (CYTARABINE) (CYTARABINE) [Suspect]
     Indication: ACUTE MONOCYTIC LEUKAEMIA
     Dosage: INTRATHECAL
     Route: 037
  2. METHOTREXATE [Suspect]
     Dosage: INTRATHECAL
     Route: 037
  3. HYDROCORTISONE (HYDROCORTISONE) (HYDROCORTISONE) [Concomitant]
  4. L-ASPARAGINASE (ASPARAGINASE) (ASPARAGINASE) [Concomitant]
  5. PEG-ASPARAGINASE (PEGASPARGASE) (PEGASPARGASE) [Concomitant]

REACTIONS (5)
  - ACUTE MONOCYTIC LEUKAEMIA [None]
  - CONDITION AGGRAVATED [None]
  - ECTHYMA [None]
  - HYPOGLYCAEMIA [None]
  - SECONDARY ADRENOCORTICAL INSUFFICIENCY [None]
